FAERS Safety Report 8364691-5 (Version None)
Quarter: 2012Q2

REPORT INFORMATION
  Report Type: 
  Country: None (occurrence: None)
  Receive Date: 20120516
  Receipt Date: 20120508
  Transmission Date: 20120825
  Serious: Yes (Hospitalization)
  Sender: FDA-Public Use
  Company Number: KR-ROCHE-1067127

PATIENT
  Age: 56 Year
  Sex: Female

DRUGS (1)
  1. BONIVA [Suspect]
     Indication: OSTEOPOROSIS
     Route: 048
     Dates: start: 20120321, end: 20120321

REACTIONS (6)
  - HEADACHE [None]
  - PERIORBITAL OEDEMA [None]
  - NAUSEA [None]
  - FACE OEDEMA [None]
  - MYALGIA [None]
  - ERYTHEMA [None]
